FAERS Safety Report 7607388-9 (Version None)
Quarter: 2011Q3

REPORT INFORMATION
  Report Type: 
  Country: None (occurrence: None)
  Receive Date: 20110713
  Receipt Date: 20110706
  Transmission Date: 20111222
  Serious: Yes (Hospitalization)
  Sender: FDA-Public Use
  Company Number: US-SANOFI-AVENTIS-2011SA036516

PATIENT
  Sex: Female

DRUGS (8)
  1. METFORMIN HCL [Concomitant]
     Indication: BLOOD GLUCOSE INCREASED
     Dates: start: 20000101, end: 20101101
  2. LEVEMIR [Concomitant]
     Indication: BLOOD GLUCOSE
     Dates: start: 20101201
  3. STARLIX [Concomitant]
     Dates: start: 20101101, end: 20110101
  4. LASIX [Suspect]
     Route: 065
  5. JANUVIA [Concomitant]
     Indication: BLOOD GLUCOSE INCREASED
     Dates: start: 20000101, end: 20101101
  6. GLIMEPIRIDE [Suspect]
     Route: 065
  7. NOVOLOG [Concomitant]
     Indication: BLOOD GLUCOSE
     Dates: start: 20110101
  8. CENTRUM SILVER [Concomitant]

REACTIONS (1)
  - RENAL DISORDER [None]
